FAERS Safety Report 24917258 (Version 1)
Quarter: 2025Q1

REPORT INFORMATION
  Report Type: Spontaneous
  Country: KR (occurrence: KR)
  Receive Date: 20250203
  Receipt Date: 20250203
  Transmission Date: 20250409
  Serious: Yes (Other)
  Sender: ASTELLAS
  Company Number: KR-ASTELLAS-2025-AER-006262

PATIENT
  Age: 81 Year
  Sex: Male

DRUGS (4)
  1. MIRABEGRON [Suspect]
     Active Substance: MIRABEGRON
     Indication: Micturition urgency
     Route: 065
     Dates: start: 202412
  2. MIRABEGRON [Suspect]
     Active Substance: MIRABEGRON
     Indication: Urinary incontinence
     Route: 065
     Dates: start: 202412, end: 202412
  3. HARNAL [Concomitant]
     Active Substance: TAMSULOSIN HYDROCHLORIDE
     Indication: Benign prostatic hyperplasia
     Dosage: 0.2MG ONE TABLET ONCE DAILY FOR 6-7 YEARS
     Route: 065
  4. CLOPIDOGREL BISULFATE [Concomitant]
     Active Substance: CLOPIDOGREL BISULFATE
     Indication: Product used for unknown indication
     Route: 065

REACTIONS (9)
  - Urinary retention [Unknown]
  - Renal impairment [Unknown]
  - Wrong technique in product usage process [Unknown]
  - Constipation [Not Recovered/Not Resolved]
  - Bladder pain [Not Recovered/Not Resolved]
  - Dysuria [Recovering/Resolving]
  - Blood pressure increased [Unknown]
  - Faeces hard [Unknown]
  - Anal fissure [Unknown]

NARRATIVE: CASE EVENT DATE: 20241201
